FAERS Safety Report 6273320-6 (Version None)
Quarter: 2009Q3

REPORT INFORMATION
  Report Type: 
  Country: None (occurrence: None)
  Receive Date: 20090720
  Receipt Date: 20090710
  Transmission Date: 20100115
  Serious: Yes (Death, Life-Threatening, Hospitalization, Other)
  Sender: FDA-Public Use
  Company Number: DE-BAYER-200825712GPV

PATIENT
  Age: 66 Year
  Sex: Male

DRUGS (5)
  1. AVELOX [Suspect]
     Indication: PYREXIA
     Dosage: TOTAL DAILY DOSE: 400 MG  UNIT DOSE: 400 MG
     Route: 048
     Dates: start: 20080229, end: 20080302
  2. KLACID [Interacting]
     Indication: PYREXIA
     Dosage: TOTAL DAILY DOSE: 250 MG  UNIT DOSE: 250 MG
     Route: 048
     Dates: start: 20080303, end: 20080303
  3. KLACID [Interacting]
     Dosage: TOTAL DAILY DOSE: 500 MG  UNIT DOSE: 250 MG
     Route: 048
     Dates: start: 20080304, end: 20080305
  4. AMLODIPINE [Concomitant]
     Indication: DRUG USE FOR UNKNOWN INDICATION
     Dosage: TOTAL DAILY DOSE: 5 MG  UNIT DOSE: 5 MG
     Route: 048
     Dates: start: 20070101
  5. KARVEA [Concomitant]
     Indication: DRUG USE FOR UNKNOWN INDICATION
     Dosage: TOTAL DAILY DOSE: 150 MG  UNIT DOSE: 150 MG
     Route: 048
     Dates: start: 20070101

REACTIONS (3)
  - AUTOIMMUNE THROMBOCYTOPENIA [None]
  - ELECTROCARDIOGRAM QT PROLONGED [None]
  - LONG QT SYNDROME [None]
